FAERS Safety Report 25684145 (Version 1)
Quarter: 2025Q3

REPORT INFORMATION
  Report Type: Spontaneous
  Country: US (occurrence: US)
  Receive Date: 20250815
  Receipt Date: 20250815
  Transmission Date: 20251020
  Serious: No
  Sender: AMGEN
  Company Number: US-AMGEN-USASP2025161108

PATIENT
  Age: 69 Year
  Sex: Female

DRUGS (16)
  1. OTEZLA [Suspect]
     Active Substance: APREMILAST
     Indication: Psoriasis
     Dosage: 30 MILLIGRAM, BID
     Route: 048
  2. LEXAPRO [Concomitant]
     Active Substance: ESCITALOPRAM OXALATE
  3. MELOXICAM [Concomitant]
     Active Substance: MELOXICAM
  4. MONTELUKAST [Concomitant]
     Active Substance: MONTELUKAST
  5. MUPIROCIN [Concomitant]
     Active Substance: MUPIROCIN
  6. OMEGA-3 ACIDS [Concomitant]
     Active Substance: OMEGA-3 FATTY ACIDS
  7. PREGABALIN [Concomitant]
     Active Substance: PREGABALIN
  8. TIZANIDINE [Concomitant]
     Active Substance: TIZANIDINE
  9. VALACYCLOVIR [Concomitant]
     Active Substance: VALACYCLOVIR HYDROCHLORIDE
  10. ZETIA [Concomitant]
     Active Substance: EZETIMIBE
  11. CALCIUM [Concomitant]
     Active Substance: CALCIUM
  12. HERBALS\TURMERIC [Concomitant]
     Active Substance: HERBALS\TURMERIC
  13. VITAMIN D3 [Concomitant]
     Active Substance: CHOLECALCIFEROL
  14. ENTYVIO [Concomitant]
     Active Substance: VEDOLIZUMAB
  15. ATORVASTATIN [Concomitant]
     Active Substance: ATORVASTATIN
  16. TRAZODONE [Concomitant]
     Active Substance: TRAZODONE HYDROCHLORIDE

REACTIONS (1)
  - Tremor [Not Recovered/Not Resolved]

NARRATIVE: CASE EVENT DATE: 20250401
